FAERS Safety Report 14430026 (Version 4)
Quarter: 2018Q4

REPORT INFORMATION
  Report Type: Report from Study
  Country: US (occurrence: US)
  Receive Date: 20180123
  Receipt Date: 20181207
  Transmission Date: 20190204
  Serious: Yes (Other)
  Sender: FDA-Public Use
  Company Number: US-AMGEN-USASL2017168082

PATIENT
  Age: 69 Year
  Sex: Male

DRUGS (5)
  1. REPATHA [Suspect]
     Active Substance: EVOLOCUMAB
     Indication: CARDIOVASCULAR DISORDER
  2. REPATHA [Suspect]
     Active Substance: EVOLOCUMAB
     Indication: DRUG INTOLERANCE
  3. REPATHA [Suspect]
     Active Substance: EVOLOCUMAB
     Indication: HYPERLIPIDAEMIA
  4. REPATHA [Suspect]
     Active Substance: EVOLOCUMAB
     Indication: HYPERCHOLESTEROLAEMIA
  5. REPATHA [Suspect]
     Active Substance: EVOLOCUMAB
     Indication: BLOOD CHOLESTEROL INCREASED
     Dosage: 140 MG, Q2WK
     Route: 065
     Dates: start: 2016

REACTIONS (10)
  - Low density lipoprotein increased [Not Recovered/Not Resolved]
  - Glucose tolerance impaired [Unknown]
  - Low density lipoprotein decreased [Unknown]
  - Immune system disorder [Unknown]
  - Prostate cancer [Not Recovered/Not Resolved]
  - Blood cholesterol increased [Not Recovered/Not Resolved]
  - Skin cancer [Unknown]
  - Back pain [Unknown]
  - Blood immunoglobulin M decreased [Unknown]
  - Blood potassium increased [Recovered/Resolved]

NARRATIVE: CASE EVENT DATE: 2017
